FAERS Safety Report 6337289-8 (Version None)
Quarter: 2009Q3

REPORT INFORMATION
  Report Type: 
  Country: None (occurrence: None)
  Receive Date: 20090901
  Receipt Date: 20090901
  Transmission Date: 20100115
  Serious: Yes (Other)
  Sender: FDA-Public Use
  Company Number: None

PATIENT
  Sex: Female
  Weight: 66.2252 kg

DRUGS (1)
  1. TOPAMAX [Suspect]
     Indication: MIGRAINE
     Dosage: 50MG ONE PO BID PO
     Route: 048
     Dates: start: 20090601, end: 20090801

REACTIONS (3)
  - CONDITION AGGRAVATED [None]
  - HEADACHE [None]
  - PRODUCT SUBSTITUTION ISSUE [None]
